FAERS Safety Report 7644418-2 (Version None)
Quarter: 2011Q3

REPORT INFORMATION
  Report Type: 
  Country: None (occurrence: None)
  Receive Date: 20110729
  Receipt Date: 20110718
  Transmission Date: 20111222
  Serious: Yes (Life-Threatening, Hospitalization, Other)
  Sender: FDA-Public Use
  Company Number: DE-ROCHE-777192

PATIENT
  Sex: Female
  Weight: 56 kg

DRUGS (5)
  1. XELODA [Suspect]
     Dosage: GIVEN AS MONOTHERAPY, 1ST CYCLE, GIVEN ON DAY 1-14 A CYCLE OF 21 DAYS
     Route: 048
     Dates: start: 20110415, end: 20110428
  2. ZOMETA [Concomitant]
     Indication: OSTEOPOROSIS
     Route: 042
     Dates: start: 20101201, end: 20110328
  3. QUINAPRIL HCL [Concomitant]
     Route: 048
  4. METOPROLOL TARTRATE [Concomitant]
     Route: 048
  5. FELOCOR [Concomitant]
     Route: 048

REACTIONS (11)
  - DIARRHOEA [None]
  - MUCOSAL INFLAMMATION [None]
  - VENOUS THROMBOSIS LIMB [None]
  - URINARY TRACT INFECTION [None]
  - SEPSIS [None]
  - PNEUMONIA [None]
  - RENAL FAILURE ACUTE [None]
  - MYOPATHY [None]
  - POLYNEUROPATHY [None]
  - MULTI-ORGAN FAILURE [None]
  - PANCYTOPENIA [None]
